FAERS Safety Report 15579192 (Version 1)
Quarter: 2018Q4

REPORT INFORMATION
  Report Type: Spontaneous
  Country: US (occurrence: US)
  Receive Date: 20181102
  Receipt Date: 20181102
  Transmission Date: 20190205
  Serious: Yes (Other)
  Sender: FDA-Public Use
  Company Number: US-SA-2018SA298966

PATIENT
  Age: 40 Year
  Sex: Female
  Weight: 69.39 kg

DRUGS (20)
  1. CYCLOPHOSPHAMIDE. [Concomitant]
     Active Substance: CYCLOPHOSPHAMIDE
  2. NEOSAR [Concomitant]
     Active Substance: CYCLOPHOSPHAMIDE
  3. ELLENCE [Concomitant]
     Active Substance: EPIRUBICIN HYDROCHLORIDE
  4. ATIVAN [Concomitant]
     Active Substance: LORAZEPAM
  5. DEXAMETHASONE. [Concomitant]
     Active Substance: DEXAMETHASONE
  6. PRILOSEC [OMEPRAZOLE] [Concomitant]
  7. TAXOTERE [Suspect]
     Active Substance: DOCETAXEL
     Dosage: 178 MG, Q3W
     Route: 042
     Dates: start: 20111119, end: 20111119
  8. EMEND [Concomitant]
     Active Substance: APREPITANT
  9. VITAMIN D3 [Concomitant]
     Active Substance: CHOLECALCIFEROL
  10. CARAFATE [Concomitant]
     Active Substance: SUCRALFATE
  11. IRON [Concomitant]
     Active Substance: IRON
     Dosage: UNK
     Dates: start: 2003, end: 2015
  12. ZOFRAN [ONDANSETRON HYDROCHLORIDE] [Concomitant]
  13. CYTOXAN [Concomitant]
     Active Substance: CYCLOPHOSPHAMIDE
  14. TOPROL XL [Concomitant]
     Active Substance: METOPROLOL SUCCINATE
  15. TAXOTERE [Suspect]
     Active Substance: DOCETAXEL
     Indication: BREAST CANCER FEMALE
     Dosage: 178 MG, Q3W
     Route: 042
     Dates: start: 20101129, end: 20101129
  16. IBUPROFEN. [Concomitant]
     Active Substance: IBUPROFEN
  17. NEULASTA [Concomitant]
     Active Substance: PEGFILGRASTIM
  18. MULTIVITAMINS [VITAMINS NOS] [Concomitant]
  19. BENTYL [Concomitant]
     Active Substance: DICYCLOMINE HYDROCHLORIDE
  20. LORTAB [LORATADINE] [Concomitant]

REACTIONS (2)
  - Alopecia [Recovering/Resolving]
  - Psychological trauma [Unknown]

NARRATIVE: CASE EVENT DATE: 201205
